FAERS Safety Report 13502860 (Version 1)
Quarter: 2017Q2

REPORT INFORMATION
  Report Type: Spontaneous
  Country: CH (occurrence: CH)
  Receive Date: 20170502
  Receipt Date: 20170502
  Transmission Date: 20170830
  Serious: Yes (Other)
  Sender: FDA-Public Use
  Company Number: CH-GLAXOSMITHKLINE-CH2017GSK059953

PATIENT
  Sex: Male

DRUGS (1)
  1. DUODART [Suspect]
     Active Substance: DUTASTERIDE\TAMSULOSIN
     Indication: BENIGN PROSTATIC HYPERPLASIA
     Dosage: 1 CAP, QD
     Route: 048
     Dates: start: 201509

REACTIONS (2)
  - Gastric ulcer [Recovered/Resolved]
  - Tooth infection [Recovered/Resolved]

NARRATIVE: CASE EVENT DATE: 201702
